FAERS Safety Report 18813846 (Version 4)
Quarter: 2021Q4

REPORT INFORMATION
  Report Type: Report from Study
  Country: GB (occurrence: GB)
  Receive Date: 20210201
  Receipt Date: 20211011
  Transmission Date: 20220303
  Serious: Yes (Other)
  Sender: FDA-Public Use
  Company Number: GB-SAMSUNG BIOEPIS-SB-2021-00425

PATIENT
  Sex: Female

DRUGS (1)
  1. ETANERCEPT [Suspect]
     Active Substance: ETANERCEPT
     Indication: Axial spondyloarthritis
     Route: 058
     Dates: start: 20201001

REACTIONS (4)
  - COVID-19 [Unknown]
  - Urinary tract infection [Unknown]
  - Back pain [Not Recovered/Not Resolved]
  - Candida infection [Unknown]
